FAERS Safety Report 9204409 (Version 1)
Quarter: 2013Q1

REPORT INFORMATION
  Report Type: Spontaneous
  Country: US (occurrence: None)
  Receive Date: 20120709
  Receipt Date: 20120709
  Transmission Date: 20140127
  Serious: Yes (Other)
  Sender: FDA-Public Use
  Company Number: PHEH2011US02728

PATIENT
  Age: 42 Year
  Sex: Male

DRUGS (1)
  1. GLEEVEC [Suspect]
     Indication: SOFT TISSUE CANCER
     Route: 048
     Dates: start: 20110806

REACTIONS (3)
  - Neoplasm recurrence [None]
  - Muscle spasms [None]
  - Nausea [None]
